FAERS Safety Report 11214536 (Version 2)
Quarter: 2015Q2

REPORT INFORMATION
  Report Type: Spontaneous
  Country: US (occurrence: US)
  Receive Date: 20150624
  Receipt Date: 20150630
  Transmission Date: 20150821
  Serious: No
  Sender: FDA-Public Use
  Company Number: US-009507513-1506USA005539

PATIENT
  Age: 75 Year
  Sex: Female

DRUGS (1)
  1. PROVENTIL [Suspect]
     Active Substance: ALBUTEROL
     Indication: PNEUMONIA
     Dosage: TWO PUFFS EVERY SIX HOURS
     Route: 055
     Dates: start: 20150608

REACTIONS (3)
  - Drug dose omission [Unknown]
  - Cough [Unknown]
  - Product quality issue [Unknown]

NARRATIVE: CASE EVENT DATE: 20150608
